FAERS Safety Report 5041752-X (Version None)
Quarter: 2006Q2

REPORT INFORMATION
  Report Type: 
  Country: None (occurrence: None)
  Receive Date: 20060630
  Receipt Date: 20060620
  Transmission Date: 20061013
  Serious: Yes (Other)
  Sender: FDA-Public Use
  Company Number: 2006064322

PATIENT

DRUGS (1)
  1. LYRICA [Suspect]
     Dosage: 300 MG (1 D)

REACTIONS (3)
  - BALANCE DISORDER [None]
  - GAIT DISTURBANCE [None]
  - SPINAL COMPRESSION FRACTURE [None]
